FAERS Safety Report 9233909 (Version 1)
Quarter: 2013Q2

REPORT INFORMATION
  Report Type: Spontaneous
  Country: US (occurrence: US)
  Receive Date: 20130416
  Receipt Date: 20130416
  Transmission Date: 20140414
  Serious: No
  Sender: FDA-Public Use
  Company Number: US-PFIZER INC-2013105658

PATIENT
  Age: 54 Year
  Sex: Male
  Weight: 72.56 kg

DRUGS (4)
  1. LYRICA [Suspect]
     Indication: NEURALGIA
     Dosage: 1 DF, 1X/DAY
     Route: 048
     Dates: start: 2012, end: 201301
  2. LYRICA [Suspect]
     Indication: NEURALGIA
  3. LYRICA [Suspect]
     Indication: NEUROPATHY PERIPHERAL
  4. DILAUDID [Concomitant]
     Indication: PAIN
     Dosage: UNK

REACTIONS (3)
  - Onychomadesis [Not Recovered/Not Resolved]
  - Local swelling [Recovered/Resolved]
  - Nail bed disorder [Not Recovered/Not Resolved]
